FAERS Safety Report 17131336 (Version 1)
Quarter: 2019Q4

REPORT INFORMATION
  Report Type: Report from Study
  Country: CA (occurrence: CA)
  Receive Date: 20191209
  Receipt Date: 20191209
  Transmission Date: 20200122
  Serious: Yes (Other)
  Sender: FDA-Public Use
  Company Number: CA-BIOGEN-2019BI00813740

PATIENT
  Sex: Female

DRUGS (1)
  1. TECFIDERA [Suspect]
     Active Substance: DIMETHYL FUMARATE
     Indication: MULTIPLE SCLEROSIS
     Dosage: MAINTENANCE DOSE
     Route: 048
     Dates: start: 20191025

REACTIONS (10)
  - Rash [Unknown]
  - Sleep apnoea syndrome [Unknown]
  - Dry mouth [Unknown]
  - Diabetes mellitus [Unknown]
  - Fatigue [Unknown]
  - Skin tightness [Unknown]
  - Skin hypertrophy [Unknown]
  - Erythema [Unknown]
  - Oxygen saturation decreased [Unknown]
  - Dry skin [Unknown]
